FAERS Safety Report 7754236-2 (Version None)
Quarter: 2011Q3

REPORT INFORMATION
  Report Type: 
  Country: None (occurrence: None)
  Receive Date: 20110915
  Receipt Date: 20110909
  Transmission Date: 20111222
  Serious: Yes (Other)
  Sender: FDA-Public Use
  Company Number: CHPA2011NL12179

PATIENT
  Sex: Male

DRUGS (3)
  1. DRUG THERAPY NOS [Suspect]
     Dosage: UNK, UNK
  2. OTRIVIN [Suspect]
     Dosage: 3 BOTTLES WEEKLY FOR YEARS
     Route: 045
  3. OTRIVIN [Suspect]
     Dosage: 3 BOTTLES WEEKLY FOR YEARS
     Route: 045
     Dates: start: 19980101

REACTIONS (4)
  - INCORRECT DRUG ADMINISTRATION DURATION [None]
  - DRUG DEPENDENCE [None]
  - THERAPEUTIC RESPONSE UNEXPECTED [None]
  - EPISTAXIS [None]
